FAERS Safety Report 4551768-5 (Version None)
Quarter: 2005Q1

REPORT INFORMATION
  Report Type: 
  Country: None (occurrence: None)
  Receive Date: 20050113
  Receipt Date: 20030923
  Transmission Date: 20050727
  Serious: Yes (Hospitalization, Other)
  Sender: FDA-Public Use
  Company Number: FR-GLAXOSMITHKLINE-B0309856A

PATIENT
  Age: 53 Year
  Sex: Female
  Weight: 58 kg

DRUGS (5)
  1. AVANDIA [Suspect]
     Indication: DIABETES MELLITUS NON-INSULIN-DEPENDENT
     Dosage: 4MG TWICE PER DAY
     Route: 048
     Dates: start: 20030905, end: 20030918
  2. DAONIL [Suspect]
     Indication: DIABETES MELLITUS NON-INSULIN-DEPENDENT
     Dosage: 5MG THREE TIMES PER DAY
     Route: 048
     Dates: start: 19980101, end: 20030918
  3. PRAVASTATIN [Concomitant]
     Indication: HYPERCHOLESTEROLAEMIA
     Dosage: 20MG PER DAY
     Route: 048
     Dates: start: 19930101
  4. ASPEGIC 325 [Concomitant]
     Dosage: 250MG PER DAY
     Route: 048
     Dates: start: 20010101
  5. LEVOTHYROX [Concomitant]
     Indication: HYPOTHYROIDISM
     Dosage: 50MCG PER DAY
     Route: 048
     Dates: start: 19930101

REACTIONS (6)
  - ANGIONEUROTIC OEDEMA [None]
  - ERYTHROSIS [None]
  - FACE OEDEMA [None]
  - PHARYNX DISCOMFORT [None]
  - SKIN DISORDER [None]
  - SUFFOCATION FEELING [None]
